FAERS Safety Report 20015644 (Version 1)
Quarter: 2021Q4

REPORT INFORMATION
  Report Type: Spontaneous
  Country: US (occurrence: None)
  Receive Date: 20211101
  Receipt Date: 20211101
  Transmission Date: 20220304
  Serious: Yes (Life-Threatening)
  Sender: FDA-Public Use
  Company Number: None

PATIENT
  Age: 79 Year
  Sex: Male
  Weight: 83.91 kg

DRUGS (1)
  1. PEMBROLIZUMAB [Suspect]
     Active Substance: PEMBROLIZUMAB
     Indication: Bladder cancer
     Dosage: OTHER STRENGTH : 50 MG/VIL;?OTHER FREQUENCY : UNKNOWN;?OTHER ROUTE : IV;?
     Route: 050
     Dates: start: 20210222, end: 20210825

REACTIONS (3)
  - Hypophysitis [None]
  - Hypotension [None]
  - Adrenal insufficiency [None]

NARRATIVE: CASE EVENT DATE: 20210820
